FAERS Safety Report 8954814 (Version 1)
Quarter: 2012Q4

REPORT INFORMATION
  Report Type: Report from Study
  Country: US (occurrence: US)
  Receive Date: 20121207
  Receipt Date: 20121207
  Transmission Date: 20130627
  Serious: Yes (Hospitalization)
  Sender: FDA-Public Use
  Company Number: PHHO2012US017425

PATIENT
  Age: 53 Year
  Sex: Female
  Weight: 86 kg

DRUGS (15)
  1. AFINITOR [Suspect]
     Indication: BREAST CANCER METASTATIC
     Dosage: 10 mg, QD
     Dates: start: 20120817, end: 20121130
  2. TRASTUZUMAB [Suspect]
     Indication: BREAST CANCER METASTATIC
     Dosage: 6 mg/kg, once every 21 day
     Dates: start: 20120705, end: 20121129
  3. AROMASIN [Concomitant]
     Dosage: UNK
     Dates: start: 20121012
  4. CYMBALTA [Concomitant]
  5. COMPAZINE [Concomitant]
  6. KADIAN [Concomitant]
  7. KLONOPIN [Concomitant]
  8. MARINOL [Concomitant]
  9. SEROQUEL [Concomitant]
  10. SYNTHROID [Concomitant]
  11. WELLBUTRIN XL [Concomitant]
     Dosage: UNK
     Dates: start: 20120315
  12. ZOMETA [Concomitant]
  13. PERCOCET [Concomitant]
     Dosage: UNK
     Dates: start: 20120817
  14. COLACE [Concomitant]
     Dosage: UNK
     Dates: start: 20120705
  15. OSTEO BI-FLEX [Concomitant]
     Dosage: UNK
     Dates: start: 20120315

REACTIONS (2)
  - Pathological fracture [Unknown]
  - Metastatic neoplasm [Unknown]
